FAERS Safety Report 10236947 (Version 1)
Quarter: 2014Q1

REPORT INFORMATION
  Report Type: Spontaneous
  Country: US (occurrence: None)
  Receive Date: 20140306
  Receipt Date: 20140306
  Transmission Date: 20141002
  Serious: Yes (Hospitalization)
  Sender: FDA-Public Use
  Company Number: 163-21880-13054612

PATIENT
  Age: 67 Year
  Sex: Female

DRUGS (8)
  1. REVLIMID (LENALIDOMIDE) (25 MILLIGRAM, CAPSULES) [Suspect]
     Indication: PLASMA CELL MYELOMA
     Dosage: 25 MG, 21 IN 28 D, PO
     Route: 048
     Dates: start: 20130510, end: 20130528
  2. VELCADE (BORTEZOMIB) (UNKNOWN) [Suspect]
     Indication: PRODUCT USED FOR UNKNOWN INDICATION
  3. ALLOPURINOL (ALLOPURINOL) (UNKNOWN) [Concomitant]
  4. PREMARIN (ESTROGENS CONJUGATED) (UNKNOWN) [Concomitant]
  5. BONIVA (IBANDRONATE SODIUM) (UNKNOWN) [Concomitant]
  6. XANAX (ALPRAZOLAM) (UNKNOWN) [Concomitant]
  7. ZOLOFT (SERTRALINE HYDROCHLORIDE) (UNKNOWN) [Concomitant]
  8. AMBIEN (ZOLPIDEM TARTRATE) (UNKNOWN) [Concomitant]

REACTIONS (3)
  - Dehydration [None]
  - Hypotension [None]
  - Diarrhoea [None]
